FAERS Safety Report 16519670 (Version 1)
Quarter: 2019Q3

REPORT INFORMATION
  Report Type: Spontaneous
  Country: US (occurrence: US)
  Receive Date: 20190522
  Receipt Date: 20190522
  Transmission Date: 20191004
  Serious: Yes (Life-Threatening, Hospitalization)
  Sender: FDA-Public Use
  Company Number: None

PATIENT
  Age: 53 Year
  Sex: Male
  Weight: 167.15 kg

DRUGS (1)
  1. METFORMIN [Suspect]
     Active Substance: METFORMIN HYDROCHLORIDE
     Indication: DIABETES MELLITUS
     Route: 048
     Dates: start: 20070118, end: 20190329

REACTIONS (4)
  - Lactic acidosis [None]
  - Gallbladder disorder [None]
  - Cholecystectomy [None]
  - Hypoxia [None]

NARRATIVE: CASE EVENT DATE: 20190329
